FAERS Safety Report 7739607-2 (Version None)
Quarter: 2011Q3

REPORT INFORMATION
  Report Type: 
  Country: None (occurrence: None)
  Receive Date: 20110909
  Receipt Date: 20110905
  Transmission Date: 20111222
  Serious: Yes (Hospitalization, Other)
  Sender: FDA-Public Use
  Company Number: NL-PFIZER INC-2011207386

PATIENT
  Age: 65 Year
  Sex: Male

DRUGS (9)
  1. DOXAZOSIN [Concomitant]
     Dosage: 4 MG, 1X/DAY
  2. FOLIC ACID [Concomitant]
     Dosage: 5 MG, 1X/DAY
  3. TOLTERODINE TARTRATE [Suspect]
     Dosage: 2 MG, UNK
     Dates: start: 20110720, end: 20110727
  4. OMEPRAZOLE [Concomitant]
     Dosage: 20 MG, 1X/DAY
  5. ETALPHA [Concomitant]
     Dosage: 25 UG, UNK
  6. CARBAMAZEPINE [Concomitant]
     Dosage: 200 MG, 3X/DAY
  7. THIAMINE [Concomitant]
     Dosage: 50 MG, 1X/DAY
  8. ACETYLSALICYLIC ACID [Concomitant]
     Dosage: 80 MG, 1X/DAY
  9. NIFEDIPINE [Concomitant]
     Dosage: 60 MG, 1X/DAY

REACTIONS (5)
  - DYSPHAGIA [None]
  - DECREASED APPETITE [None]
  - PLEURAL EFFUSION [None]
  - CHEST PAIN [None]
  - DEHYDRATION [None]
